FAERS Safety Report 20664566 (Version 3)
Quarter: 2023Q1

REPORT INFORMATION
  Report Type: Spontaneous
  Country: US (occurrence: US)
  Receive Date: 20220401
  Receipt Date: 20230120
  Transmission Date: 20230417
  Serious: Yes (Other)
  Sender: FDA-Public Use
  Company Number: US-PFIZER INC-202101324781

PATIENT
  Age: 71 Year
  Sex: Female

DRUGS (1)
  1. IBRANCE [Suspect]
     Active Substance: PALBOCICLIB
     Dosage: TAKE 1 DAILY 21 DAYS ON FOLLOWED BY 7 DAYS OFF
     Route: 048

REACTIONS (3)
  - Second primary malignancy [Unknown]
  - Malignant neoplasm of eye [Unknown]
  - Off label use [Unknown]
